FAERS Safety Report 22014105 (Version 1)
Quarter: 2023Q1

REPORT INFORMATION
  Report Type: Spontaneous
  Country: US (occurrence: US)
  Receive Date: 20230221
  Receipt Date: 20230221
  Transmission Date: 20230418
  Serious: No
  Sender: FDA-Public Use
  Company Number: US-SA-SAC20230217000688

PATIENT
  Age: 61 Year
  Sex: Male
  Weight: 104.31 kg

DRUGS (5)
  1. DUPIXENT [Suspect]
     Active Substance: DUPILUMAB
     Indication: Dermatitis atopic
     Dosage: 300 MG, QOW
     Route: 058
     Dates: start: 20220323, end: 202302
  2. METOPROLOL SUCCINATE [Concomitant]
     Active Substance: METOPROLOL SUCCINATE
  3. SIMVASTATIN [Concomitant]
     Active Substance: SIMVASTATIN
  4. METHOTREXATE [Concomitant]
     Active Substance: METHOTREXATE
  5. MELOXICAM [Concomitant]
     Active Substance: MELOXICAM

REACTIONS (1)
  - Nasopharyngitis [Recovered/Resolved]

NARRATIVE: CASE EVENT DATE: 20230201
